FAERS Safety Report 8235813-1 (Version None)
Quarter: 2012Q1

REPORT INFORMATION
  Report Type: 
  Country: None (occurrence: None)
  Receive Date: 20120326
  Receipt Date: 20120324
  Transmission Date: 20120608
  Serious: Yes (Hospitalization, Other)
  Sender: FDA-Public Use
  Company Number: US-PFIZER INC-2011122884

PATIENT
  Sex: Male
  Weight: 68.027 kg

DRUGS (1)
  1. CHANTIX [Suspect]
     Indication: SMOKING CESSATION THERAPY
     Dosage: 1 MG, 2X/DAY
     Route: 048
     Dates: start: 20110525, end: 20110501

REACTIONS (5)
  - MYOCARDIAL INFARCTION [None]
  - SUICIDAL IDEATION [None]
  - FEELING ABNORMAL [None]
  - PHYSICAL ASSAULT [None]
  - ANGER [None]
